FAERS Safety Report 19679901 (Version 2)
Quarter: 2022Q2

REPORT INFORMATION
  Report Type: Report from Study
  Country: US (occurrence: US)
  Receive Date: 20210809
  Receipt Date: 20220408
  Transmission Date: 20220721
  Serious: Yes (Hospitalization, Other)
  Sender: FDA-Public Use
  Company Number: US-ABBVIE-21K-163-4024116-00

PATIENT
  Age: 40 Year
  Sex: Female
  Weight: 98.064 kg

DRUGS (8)
  1. LUPRON [Suspect]
     Active Substance: LEUPROLIDE ACETATE
     Indication: Endometriosis
     Route: 030
     Dates: start: 202011, end: 202106
  2. LUPRON [Suspect]
     Active Substance: LEUPROLIDE ACETATE
     Route: 030
     Dates: start: 202106, end: 202106
  3. PFIZER-BIONTECH COVID-19 VACCINE [Concomitant]
     Active Substance: TOZINAMERAN
     Indication: COVID-19 immunisation
     Dosage: PFIZER
     Route: 030
     Dates: start: 202104, end: 202104
  4. PFIZER-BIONTECH COVID-19 VACCINE [Concomitant]
     Active Substance: TOZINAMERAN
     Dosage: PFIZER
     Route: 030
     Dates: start: 202105, end: 202105
  5. LEXAPRO [Concomitant]
     Active Substance: ESCITALOPRAM OXALATE
     Indication: Depression
  6. XANAX [Concomitant]
     Active Substance: ALPRAZOLAM
     Indication: Anxiety
  7. OMEPRAZOLE [Concomitant]
     Active Substance: OMEPRAZOLE
     Indication: Gastrooesophageal reflux disease
  8. VITAMIN D3 [Concomitant]
     Active Substance: CHOLECALCIFEROL
     Indication: Bone disorder

REACTIONS (12)
  - Immune thrombocytopenia [Unknown]
  - Platelet count decreased [Recovered/Resolved]
  - Personality change [Unknown]
  - Abnormal behaviour [Unknown]
  - Frustration tolerance decreased [Unknown]
  - Agitation [Recovering/Resolving]
  - Skin disorder [Recovered/Resolved]
  - Bone pain [Not Recovered/Not Resolved]
  - Mood altered [Not Recovered/Not Resolved]
  - Aggression [Unknown]
  - Epistaxis [Recovered/Resolved]
  - Insomnia [Unknown]

NARRATIVE: CASE EVENT DATE: 20201101
